FAERS Safety Report 20980940 (Version 2)
Quarter: 2022Q2

REPORT INFORMATION
  Report Type: Spontaneous
  Country: US (occurrence: None)
  Receive Date: 20220620
  Receipt Date: 20220621
  Transmission Date: 20220720
  Serious: Yes (Other)
  Sender: FDA-Public Use
  Company Number: US-ROCHE-3119382

PATIENT
  Age: 69 Year
  Sex: Female

DRUGS (1)
  1. ACTEMRA [Suspect]
     Active Substance: TOCILIZUMAB
     Indication: Rheumatoid arthritis
     Dosage: STARTED ABOUT 2 YEARS AGO AND NOT ONGOING
     Route: 042
     Dates: end: 202205

REACTIONS (1)
  - Acral lentiginous melanoma [Not Recovered/Not Resolved]

NARRATIVE: CASE EVENT DATE: 20220501
